FAERS Safety Report 9691571 (Version 2)
Quarter: 2013Q4

REPORT INFORMATION
  Report Type: Spontaneous
  Country: US (occurrence: US)
  Receive Date: 20131115
  Receipt Date: 20131212
  Transmission Date: 20140711
  Serious: Yes (Other)
  Sender: FDA-Public Use
  Company Number: CHPA2013US017056

PATIENT
  Age: 56 Year
  Sex: Female

DRUGS (4)
  1. MAALOX ANTACID BARRIER [Suspect]
     Indication: CROHN^S DISEASE
     Dosage: 1 TO 2 DF, PRN
     Route: 048
  2. MAALOX ANTACID BARRIER [Suspect]
     Indication: GASTROOESOPHAGEAL REFLUX DISEASE
  3. MAALOX ANTACID BARRIER [Suspect]
     Indication: OFF LABEL USE
  4. MAALOX ANTACID/ANTIGAS MAX LIQ UNKNOWN [Suspect]
     Indication: ABDOMINAL DISCOMFORT
     Dosage: A SWIG, UNK

REACTIONS (4)
  - Crohn^s disease [Unknown]
  - Disease recurrence [Unknown]
  - Gastrooesophageal reflux disease [Unknown]
  - Therapeutic response unexpected [Unknown]
